FAERS Safety Report 6126669-1 (Version None)
Quarter: 2009Q1

REPORT INFORMATION
  Report Type: 
  Country: None (occurrence: None)
  Receive Date: 20090320
  Receipt Date: 20090317
  Transmission Date: 20090719
  Serious: Yes (Death)
  Sender: FDA-Public Use
  Company Number: ES-SANOFI-SYNTHELABO-F01200900263

PATIENT
  Sex: Male
  Weight: 73 kg

DRUGS (6)
  1. URBAL [Concomitant]
     Dosage: 1 PACK
     Route: 048
     Dates: start: 20090105
  2. AXIAGO [Concomitant]
     Route: 048
     Dates: start: 20090105
  3. ORAL FERRUM [Concomitant]
     Route: 048
     Dates: start: 20090105
  4. CAPECITABINE [Suspect]
     Route: 048
     Dates: start: 20090121, end: 20090316
  5. DOCETAXEL [Suspect]
     Route: 042
     Dates: start: 20090304, end: 20090304
  6. OXALIPLATIN [Suspect]
     Indication: GASTRIC CANCER
     Route: 042
     Dates: start: 20090304, end: 20090304

REACTIONS (1)
  - SUDDEN DEATH [None]
